FAERS Safety Report 25815355 (Version 2)
Quarter: 2025Q4

REPORT INFORMATION
  Report Type: Spontaneous
  Country: EU (occurrence: EU)
  Receive Date: 20250918
  Receipt Date: 20251015
  Transmission Date: 20260118
  Serious: Yes (Other)
  Sender: CELLTRION
  Company Number: EU-SANDOZ-SDZ2025SK063664

PATIENT

DRUGS (3)
  1. INFLIXIMAB [Suspect]
     Active Substance: INFLIXIMAB
     Indication: Crohn^s disease
     Dosage: EVERY 8 WEEKS
     Route: 042
     Dates: start: 20180301
  2. INFLIXIMAB [Suspect]
     Active Substance: INFLIXIMAB
     Dosage: TREATMENT WAS INTENSIFIED AFTER SIX MONTHS TO 5 MG/KG, Q4W
     Route: 065
     Dates: end: 20190606
  3. AZATHIOPRINE [Suspect]
     Active Substance: AZATHIOPRINE
     Indication: Immunosuppressant drug therapy
     Dosage: UNK (BEGINNING OF 2018)
     Route: 065
     Dates: start: 2018

REACTIONS (3)
  - Crohn^s disease [Unknown]
  - Respiratory tract infection [Unknown]
  - Intentional product use issue [Unknown]
